FAERS Safety Report 9603150 (Version 1)
Quarter: 2013Q4

REPORT INFORMATION
  Report Type: Spontaneous
  Country: JP (occurrence: JP)
  Receive Date: 20131007
  Receipt Date: 20131007
  Transmission Date: 20140711
  Serious: Yes (Other)
  Sender: FDA-Public Use
  Company Number: JP-ACTAVIS-2013-17192

PATIENT
  Age: 50 Year
  Sex: Female

DRUGS (2)
  1. IRINOTECAN (UNKNOWN) [Suspect]
     Indication: MALIGNANT ASCITES
     Dosage: 80 MG/BODY, 2/WEEK, 5 COURSES
     Route: 065
  2. CISPLATIN (UNKNOWN) [Suspect]
     Indication: MALIGNANT ASCITES
     Dosage: 80 MG/BODY, 2/WEEK, 5 COURSES
     Route: 065

REACTIONS (2)
  - Diarrhoea [Unknown]
  - Dysphagia [Unknown]
